FAERS Safety Report 14626282 (Version 1)
Quarter: 2018Q1

REPORT INFORMATION
  Report Type: Spontaneous
  Country: US (occurrence: US)
  Receive Date: 20180312
  Receipt Date: 20180312
  Transmission Date: 20180509
  Serious: No
  Sender: FDA-Public Use
  Company Number: US-INCYTE CORPORATION-2018IN002054

PATIENT

DRUGS (1)
  1. JAKAFI [Suspect]
     Active Substance: RUXOLITINIB
     Indication: MYELOFIBROSIS
     Dosage: 15 MG (3 5 MG TABS DAILY) DAILY
     Route: 048
     Dates: start: 20180120

REACTIONS (3)
  - Poor personal hygiene [Unknown]
  - Oedema peripheral [Unknown]
  - Dyspnoea [Unknown]
